FAERS Safety Report 25431394 (Version 2)
Quarter: 2025Q3

REPORT INFORMATION
  Report Type: Report from Study
  Country: TW (occurrence: TW)
  Receive Date: 20250613
  Receipt Date: 20250912
  Transmission Date: 20251021
  Serious: Yes (Other)
  Sender: JOHNSON AND JOHNSON
  Company Number: TW-JNJFOC-20250609637

PATIENT
  Age: 44 Year
  Sex: Male
  Weight: 78.2 kg

DRUGS (1)
  1. SIMPONI [Suspect]
     Active Substance: GOLIMUMAB
     Indication: Ankylosing spondylitis
     Route: 058
     Dates: start: 20141002

REACTIONS (1)
  - Viral hepatitis carrier [Unknown]

NARRATIVE: CASE EVENT DATE: 20250506
